FAERS Safety Report 7491562-9 (Version None)
Quarter: 2011Q1

REPORT INFORMATION
  Report Type: 
  Country: None (occurrence: None)
  Receive Date: 20110318
  Receipt Date: 20091113
  Transmission Date: 20110831
  Serious: Yes (Other)
  Sender: FDA-Public Use
  Company Number: 2-1109-38

PATIENT
  Age: 75 Year
  Sex: Male

DRUGS (9)
  1. FLOMAX [Concomitant]
  2. DENOREX [Concomitant]
  3. ZOCOR [Concomitant]
  4. ZESTRIL [Concomitant]
  5. CLOBEX SPRAY + CLOBEX SHAMPOO [Concomitant]
  6. DERMA-SMOOTHE/FS [Suspect]
     Indication: PSORIASIS
     Dosage: TOPICAL
     Route: 061
  7. ATENOLOL [Concomitant]
  8. HYDROCORISONE [Concomitant]
  9. DIURETIC [Concomitant]

REACTIONS (3)
  - VISION BLURRED [None]
  - VISUAL ACUITY REDUCED [None]
  - EYE IRRITATION [None]
